FAERS Safety Report 10780049 (Version 1)
Quarter: 2015Q1

REPORT INFORMATION
  Report Type: Spontaneous
  Country: US (occurrence: None)
  Receive Date: 20150206
  Receipt Date: 20150206
  Transmission Date: 20150721
  Serious: No
  Sender: FDA-Public Use
  Company Number: None

PATIENT
  Age: 46 Year
  Sex: Female
  Weight: 78.5 kg

DRUGS (5)
  1. SODIUM CHLORIDE. [Concomitant]
     Active Substance: SODIUM CHLORIDE
  2. FAMOTIDINE. [Concomitant]
     Active Substance: FAMOTIDINE
  3. DIPHENHYDRAMINE [Concomitant]
     Active Substance: DIPHENHYDRAMINE
  4. ADO-TRASTUZUMAB EMTANSINE 100MG GENENTECH [Suspect]
     Active Substance: ADO-TRASTUZUMAB EMTANSINE
     Indication: BREAST CANCER
     Route: 042
     Dates: start: 20141209, end: 20141209
  5. DENOSUMAB [Concomitant]
     Active Substance: DENOSUMAB

REACTIONS (5)
  - Infusion related reaction [None]
  - Dyspnoea [None]
  - Paraesthesia oral [None]
  - Chest discomfort [None]
  - Fatigue [None]

NARRATIVE: CASE EVENT DATE: 20141209
